FAERS Safety Report 13957694 (Version 2)
Quarter: 2017Q4

REPORT INFORMATION
  Report Type: Spontaneous
  Country: US (occurrence: US)
  Receive Date: 20170912
  Receipt Date: 20171010
  Transmission Date: 20180320
  Serious: Yes (Hospitalization, Disabling, Other)
  Sender: FDA-Public Use
  Company Number: US-009507513-1709USA004763

PATIENT
  Age: 34 Year
  Sex: Female

DRUGS (3)
  1. KEYTRUDA [Suspect]
     Active Substance: PEMBROLIZUMAB
     Indication: MALIGNANT MELANOMA STAGE IV
  2. KEYTRUDA [Suspect]
     Active Substance: PEMBROLIZUMAB
     Indication: METASTATIC MALIGNANT MELANOMA
     Dosage: 200 MG, EVERY THREE WEEKS
     Route: 042
     Dates: start: 20170524, end: 20170907
  3. AZACITIDINE. [Suspect]
     Active Substance: AZACITIDINE
     Dosage: UNK
     Route: 048
     Dates: start: 20170524, end: 20170907

REACTIONS (4)
  - Staphylococcal abscess [Unknown]
  - Rash maculo-papular [Unknown]
  - Cellulitis [Unknown]
  - Wound infection staphylococcal [Unknown]

NARRATIVE: CASE EVENT DATE: 2017
